FAERS Safety Report 9558380 (Version 5)
Quarter: 2014Q2

REPORT INFORMATION
  Report Type: Report from Study
  Country: AU (occurrence: AU)
  Receive Date: 20130926
  Receipt Date: 20140404
  Transmission Date: 20141212
  Serious: Yes (Death, Hospitalization, Other)
  Sender: FDA-Public Use
  Company Number: AU-ROCHE-1280336

PATIENT
  Age: 90 Year
  Sex: Female

DRUGS (7)
  1. RANIBIZUMAB [Suspect]
     Indication: AGE-RELATED MACULAR DEGENERATION
     Dosage: DATE OF LAST DOSE PRIOR TO SAE: 21/AUG/2013
     Route: 050
     Dates: start: 20071205
  2. RANIBIZUMAB [Suspect]
     Route: 065
     Dates: start: 20130821
  3. IMDUR [Concomitant]
     Route: 065
     Dates: start: 2000
  4. WARFARIN [Concomitant]
     Route: 065
     Dates: start: 1999
  5. SOMAC [Concomitant]
     Route: 065
     Dates: start: 2004
  6. EZETIMIBE [Concomitant]
     Route: 065
     Dates: start: 1999
  7. PRAVACHOL [Concomitant]
     Route: 065
     Dates: start: 1999

REACTIONS (13)
  - Aortic aneurysm rupture [Fatal]
  - Blood pressure increased [Unknown]
  - Blood sodium decreased [Unknown]
  - Blood chloride decreased [Unknown]
  - White blood cell count increased [Unknown]
  - Haemoglobin decreased [Unknown]
  - Haematocrit decreased [Unknown]
  - General physical health deterioration [Unknown]
  - Haemorrhage [Unknown]
  - Diverticulum [Recovering/Resolving]
  - International normalised ratio increased [Unknown]
  - Aortic aneurysm [Unknown]
  - Pyelocaliectasis [Unknown]
